FAERS Safety Report 5702974-5 (Version None)
Quarter: 2008Q2

REPORT INFORMATION
  Report Type: 
  Country: None (occurrence: None)
  Receive Date: 20080408
  Receipt Date: 20080327
  Transmission Date: 20081010
  Serious: Yes (Hospitalization)
  Sender: FDA-Public Use
  Company Number: FABR-1000161

PATIENT
  Age: 37 Year
  Sex: Male

DRUGS (1)
  1. FABRAZYME [Suspect]
     Indication: FABRY'S DISEASE
     Dosage: 56 MG, Q2W, INTRAVENOUS
     Route: 042
     Dates: start: 20030513

REACTIONS (2)
  - CONVULSION [None]
  - HYPOACUSIS [None]
